FAERS Safety Report 6145565-7 (Version None)
Quarter: 2009Q2

REPORT INFORMATION
  Report Type: 
  Country: None (occurrence: None)
  Receive Date: 20090407
  Receipt Date: 20071121
  Transmission Date: 20091009
  Serious: Yes (Death)
  Sender: FDA-Public Use
  Company Number: US-ASTRAZENECA-2006UW21578

PATIENT
  Age: 19275 Day
  Sex: Male
  Weight: 85.7 kg

DRUGS (11)
  1. SEROQUEL [Suspect]
     Indication: POST-TRAUMATIC STRESS DISORDER
     Dosage: 100 MG-300 MG
     Route: 048
     Dates: start: 20030404
  2. SEROQUEL [Suspect]
     Indication: ANXIETY
     Dosage: 100 MG-300 MG
     Route: 048
     Dates: start: 20030404
  3. SEROQUEL [Suspect]
     Indication: AFFECTIVE DISORDER
     Dosage: 100 MG-300 MG
     Route: 048
     Dates: start: 20030404
  4. GLIPIZIDE [Concomitant]
  5. METFORMIN HCL [Concomitant]
  6. PREDNISOLON ACETATE [Concomitant]
  7. OXYCODONE/ACETOMINOPHENE [Concomitant]
  8. SILDENAFIL CITRATE [Concomitant]
  9. DOCUSATE [Concomitant]
  10. LISINOPRIL [Concomitant]
  11. SENNOSIDES [Concomitant]

REACTIONS (14)
  - DIABETES MELLITUS [None]
  - DYSURIA [None]
  - ERECTILE DYSFUNCTION [None]
  - GASTROENTERITIS [None]
  - HEPATITIS C [None]
  - NASAL CONGESTION [None]
  - OROPHARYNGEAL PAIN [None]
  - PAIN IN EXTREMITY [None]
  - PRURITUS GENERALISED [None]
  - RENAL FAILURE [None]
  - SEPTIC SHOCK [None]
  - SKIN BURNING SENSATION [None]
  - VISION BLURRED [None]
  - VISUAL ACUITY REDUCED [None]
